FAERS Safety Report 13287268 (Version 4)
Quarter: 2017Q2

REPORT INFORMATION
  Report Type: Report from Study
  Country: ID (occurrence: ID)
  Receive Date: 20170302
  Receipt Date: 20170421
  Transmission Date: 20170830
  Serious: Yes (Death, Other)
  Sender: FDA-Public Use
  Company Number: ID-BAYER-2017-037032

PATIENT
  Age: 65 Year
  Sex: Male

DRUGS (1)
  1. NEXAVAR [Suspect]
     Active Substance: SORAFENIB
     Indication: HEPATOCELLULAR CARCINOMA
     Dosage: DAILY DOSE 2 X 200 MG
     Route: 048
     Dates: start: 20170123, end: 20170311

REACTIONS (12)
  - Pain [Fatal]
  - Drug ineffective [None]
  - Abasia [Not Recovered/Not Resolved]
  - Pain [Not Recovered/Not Resolved]
  - Asthenia [Fatal]
  - Loss of consciousness [None]
  - Dysstasia [Not Recovered/Not Resolved]
  - Malaise [Not Recovered/Not Resolved]
  - Ammonia increased [Not Recovered/Not Resolved]
  - Hepatocellular carcinoma [Fatal]
  - Decreased appetite [Fatal]
  - Hepatic function abnormal [None]

NARRATIVE: CASE EVENT DATE: 2017
